FAERS Safety Report 4593129-9 (Version None)
Quarter: 2005Q1

REPORT INFORMATION
  Report Type: 
  Country: None (occurrence: None)
  Receive Date: 20050224
  Receipt Date: 20040120
  Transmission Date: 20050727
  Serious: No
  Sender: FDA-Public Use
  Company Number: US-BRISTOL-MYERS SQUIBB COMPANY-12498598

PATIENT
  Age: 67 Year
  Sex: Female
  Weight: 67 kg

DRUGS (2)
  1. EXCEDRIN (MIGRAINE) [Suspect]
     Indication: HEADACHE
     Route: 048
     Dates: start: 20040117, end: 20040117
  2. THYROXINE [Concomitant]
     Indication: THYROID GLAND CANCER

REACTIONS (4)
  - BLOOD PRESSURE INCREASED [None]
  - INSOMNIA [None]
  - PALPITATIONS [None]
  - TREMOR [None]
